FAERS Safety Report 9939290 (Version 1)
Quarter: 2014Q1

REPORT INFORMATION
  Report Type: Report from Study
  Country: US (occurrence: US)
  Receive Date: 20140303
  Receipt Date: 20140303
  Transmission Date: 20141002
  Serious: No
  Sender: FDA-Public Use
  Company Number: US-ABBVIE-13P-163-1036934-00

PATIENT
  Age: 52 Year
  Sex: Female

DRUGS (6)
  1. HUMIRA [Suspect]
     Indication: PSORIASIS
     Dates: start: 201210
  2. SEROQUEL [Concomitant]
     Indication: INSOMNIA
     Dosage: 200 MG EVERY NIGHT
  3. PRISTIQ [Concomitant]
     Indication: DEPRESSION
     Dosage: 50 MG EVERY NIGHT
  4. LISINOPRIL [Concomitant]
     Indication: BLOOD PRESSURE
     Dosage: 10 MG EVERY NIGHT
  5. ADDERALL XR [Concomitant]
     Indication: ATTENTION DEFICIT/HYPERACTIVITY DISORDER
  6. WELLBUTRIN 150 XR [Concomitant]
     Indication: DEPRESSION

REACTIONS (1)
  - Pain [Recovered/Resolved]
